FAERS Safety Report 6593082-2 (Version None)
Quarter: 2010Q1

REPORT INFORMATION
  Report Type: 
  Country: None (occurrence: None)
  Receive Date: 20100218
  Receipt Date: 20100218
  Transmission Date: 20100710
  Serious: Yes (Other)
  Sender: FDA-Public Use
  Company Number: None

PATIENT
  Sex: Male
  Weight: 90.2658 kg

DRUGS (1)
  1. SUTENT [Suspect]
     Indication: RENAL CELL CARCINOMA
     Dosage: 25MG 4 WK ON 2 WK OFF  ORALLY
     Route: 048
     Dates: start: 20091202

REACTIONS (2)
  - ASTHENIA [None]
  - QUADRIPLEGIA [None]
